FAERS Safety Report 19488641 (Version 2)
Quarter: 2021Q3

REPORT INFORMATION
  Report Type: Other
  Country: US (occurrence: US)
  Receive Date: 20210702
  Receipt Date: 20210729
  Transmission Date: 20211014
  Serious: Yes (Hospitalization)
  Sender: FDA-Public Use
  Company Number: US-ROCHE-2856857

PATIENT
  Age: 36 Year
  Sex: Male
  Weight: 148.91 kg

DRUGS (2)
  1. PREDNISONE. [Concomitant]
     Active Substance: PREDNISONE
     Indication: PAIN
     Dosage: 4 ORAL FOR 2?3 DAYS AS PER PAIN
     Route: 048
     Dates: start: 20191104
  2. OCREVUS [Suspect]
     Active Substance: OCRELIZUMAB
     Indication: RELAPSING MULTIPLE SCLEROSIS
     Dosage: DATE OF TREATMENT:  18/DEC/2020, 07/JUL/2021?300 MG/10 ML, DISPENSE 4 ML, THEN 600 MG ONCE EVERY 6 M
     Route: 042
     Dates: start: 20200605

REACTIONS (1)
  - COVID-19 pneumonia [Recovered/Resolved]

NARRATIVE: CASE EVENT DATE: 20210525
